FAERS Safety Report 20361975 (Version 2)
Quarter: 2022Q2

REPORT INFORMATION
  Report Type: Spontaneous
  Country: US (occurrence: US)
  Receive Date: 20220121
  Receipt Date: 20220412
  Transmission Date: 20220721
  Serious: No
  Sender: FDA-Public Use
  Company Number: US-DSJP-DSU-2022-101941AA

PATIENT
  Sex: Female

DRUGS (3)
  1. WELCHOL [Suspect]
     Active Substance: COLESEVELAM HYDROCHLORIDE
     Indication: Hypersensitivity
     Dosage: 6 DF (625 MG), QD
     Route: 065
  2. COLESEVELAM HYDROCHLORIDE [Suspect]
     Active Substance: COLESEVELAM HYDROCHLORIDE
     Indication: Hypersensitivity
     Dosage: 6 DF (625 MG), QD
     Route: 065
     Dates: start: 2022
  3. COLESEVELAM HYDROCHLORIDE [Suspect]
     Active Substance: COLESEVELAM HYDROCHLORIDE
     Indication: Hypersensitivity
     Dosage: 6 DF (625 MG), QD
     Route: 065

REACTIONS (4)
  - Gastrointestinal haemorrhage [Unknown]
  - Gastrointestinal tract irritation [Unknown]
  - Gastrointestinal pain [Unknown]
  - Drug ineffective [Unknown]

NARRATIVE: CASE EVENT DATE: 20220101
